FAERS Safety Report 9637357 (Version 2)
Quarter: 2013Q4

REPORT INFORMATION
  Report Type: Spontaneous
  Country: SE (occurrence: SE)
  Receive Date: 20131022
  Receipt Date: 20131031
  Transmission Date: 20140711
  Serious: Yes (Other)
  Sender: FDA-Public Use
  Company Number: PHHY2013SE117109

PATIENT
  Age: 40 Year
  Sex: Female

DRUGS (2)
  1. CLOZAPINE [Suspect]
     Indication: SCHIZOPHRENIA, PARANOID TYPE
     Dosage: UNK
  2. CLOZAPINE [Suspect]
     Indication: SCHIZOPHRENIA

REACTIONS (2)
  - Cardiac tamponade [Unknown]
  - Pericarditis [Unknown]
